FAERS Safety Report 12250360 (Version 3)
Quarter: 2016Q2

REPORT INFORMATION
  Report Type: Spontaneous
  Country: BR (occurrence: BR)
  Receive Date: 20160408
  Receipt Date: 20160527
  Transmission Date: 20160815
  Serious: Yes (Other)
  Sender: FDA-Public Use
  Company Number: PHHY2016BR044525

PATIENT
  Age: 82 Year
  Sex: Male

DRUGS (1)
  1. LECTRUM [Suspect]
     Active Substance: LEUPROLIDE ACETATE
     Indication: PRODUCT USED FOR UNKNOWN INDICATION
     Dosage: 375 MG, UNK
     Route: 065
     Dates: start: 20130926

REACTIONS (4)
  - Prostatic specific antigen increased [Unknown]
  - Drug ineffective [Unknown]
  - Blood testosterone increased [Unknown]
  - Disease progression [Unknown]
